FAERS Safety Report 6812291-8 (Version None)
Quarter: 2010Q3

REPORT INFORMATION
  Report Type: 
  Country: None (occurrence: None)
  Receive Date: 20100701
  Receipt Date: 20100618
  Transmission Date: 20110219
  Serious: Yes (Other)
  Sender: FDA-Public Use
  Company Number: PHEH2009US13158

PATIENT
  Sex: Female

DRUGS (2)
  1. EXJADE [Suspect]
     Indication: ANAEMIA OF CHRONIC DISEASE
     Dosage: 750 MG, DAILY
     Route: 048
     Dates: start: 20071016
  2. NEXIUM [Suspect]
     Indication: GASTROINTESTINAL ULCER
     Dosage: UNK
     Route: 048

REACTIONS (5)
  - DIARRHOEA [None]
  - FALL [None]
  - NAUSEA [None]
  - RETCHING [None]
  - THROAT IRRITATION [None]
